FAERS Safety Report 16737038 (Version 1)
Quarter: 2019Q3

REPORT INFORMATION
  Report Type: Spontaneous
  Country: US (occurrence: US)
  Receive Date: 20190823
  Receipt Date: 20190823
  Transmission Date: 20191005
  Serious: Yes (Hospitalization)
  Sender: FDA-Public Use
  Company Number: US-GLAXOSMITHKLINE-US2019AMR150988

PATIENT
  Sex: Male

DRUGS (2)
  1. NUCALA [Suspect]
     Active Substance: MEPOLIZUMAB
     Indication: PRODUCT USED FOR UNKNOWN INDICATION
     Dosage: UNK
     Route: 065
     Dates: start: 201905
  2. NUCALA [Suspect]
     Active Substance: MEPOLIZUMAB
     Dosage: UNK
     Route: 065
     Dates: start: 20190725

REACTIONS (19)
  - Nausea [Unknown]
  - Wheezing [Unknown]
  - Blood pressure abnormal [Unknown]
  - Somnolence [Unknown]
  - Dysstasia [Unknown]
  - Malaise [Unknown]
  - Gait inability [Unknown]
  - Nasal congestion [Unknown]
  - Influenza like illness [Unknown]
  - Thirst [Unknown]
  - Asthenia [Unknown]
  - Musculoskeletal chest pain [Unknown]
  - Dyspnoea [Unknown]
  - Heart rate abnormal [Unknown]
  - Product dose omission [Unknown]
  - Headache [Unknown]
  - Decreased appetite [Unknown]
  - Feeling abnormal [Unknown]
  - Pain [Unknown]

NARRATIVE: CASE EVENT DATE: 20190819
